FAERS Safety Report 8164033-4 (Version None)
Quarter: 2012Q1

REPORT INFORMATION
  Report Type: 
  Country: None (occurrence: None)
  Receive Date: 20120224
  Receipt Date: 20120215
  Transmission Date: 20120608
  Serious: Yes (Other)
  Sender: FDA-Public Use
  Company Number: PHFR2012GB000796

PATIENT
  Sex: Female

DRUGS (2)
  1. CLOZARIL [Suspect]
     Route: 048
     Dates: start: 20040402
  2. TRIMETHOPRIM [Concomitant]
     Dosage: UNK

REACTIONS (2)
  - URINARY TRACT INFECTION [None]
  - PYREXIA [None]
